FAERS Safety Report 4969300-0 (Version None)
Quarter: 2006Q2

REPORT INFORMATION
  Report Type: 
  Country: None (occurrence: None)
  Receive Date: 20060405
  Receipt Date: 20060330
  Transmission Date: 20061013
  Serious: Yes (Disabling, Other)
  Sender: FDA-Public Use
  Company Number: 2006044966

PATIENT
  Age: 40 Year
  Sex: Female
  Weight: 74.8435 kg

DRUGS (5)
  1. NORVASC [Suspect]
     Indication: HYPERTENSION
     Dates: start: 20000101
  2. NEXIUM [Concomitant]
  3. TOPROL-XL [Concomitant]
  4. HYDROCHLOROTHIAZIDE [Concomitant]
  5. ALBUTEROL [Concomitant]

REACTIONS (10)
  - HYPOTRICHOSIS [None]
  - KNEE ARTHROPLASTY [None]
  - MOBILITY DECREASED [None]
  - MUSCLE SPASMS [None]
  - MUSCLE TWITCHING [None]
  - OSTEOARTHRITIS [None]
  - PAIN [None]
  - THERAPY NON-RESPONDER [None]
  - UTERINE CYST [None]
  - WEIGHT FLUCTUATION [None]
